FAERS Safety Report 8590882-4 (Version None)
Quarter: 2012Q3

REPORT INFORMATION
  Report Type: 
  Country: None (occurrence: None)
  Receive Date: 20120813
  Receipt Date: 20120807
  Transmission Date: 20120928
  Serious: Yes (Hospitalization)
  Sender: FDA-Public Use
  Company Number: JP-VERTEX PHARMACEUTICALS INC.-AE-2012-006551

PATIENT
  Age: 70 Year
  Sex: Female

DRUGS (11)
  1. LOXONIN [Concomitant]
     Dates: start: 20120314
  2. RIBAVIRIN [Concomitant]
     Indication: HEPATITIS C
     Route: 048
     Dates: start: 20120314, end: 20120404
  3. DEPAS [Concomitant]
     Route: 048
  4. RIBAVIRIN [Concomitant]
     Route: 048
     Dates: start: 20120405
  5. LENDEM [Concomitant]
     Route: 048
  6. URSO 250 [Concomitant]
     Route: 048
     Dates: start: 20110811
  7. TELAVIC [Suspect]
     Indication: HEPATITIS C
     Route: 048
     Dates: start: 20120314
  8. ALLOPURINOL [Concomitant]
     Route: 048
     Dates: start: 20120317
  9. PEGINTERFERON ALFA-2B [Concomitant]
     Indication: HEPATITIS C
     Route: 058
     Dates: start: 20120314
  10. NORVASC [Concomitant]
     Route: 048
     Dates: end: 20120424
  11. JUZEN-TAIHO-TO [Concomitant]
     Route: 048
     Dates: start: 20120314

REACTIONS (2)
  - NAUSEA [None]
  - DECREASED APPETITE [None]
